FAERS Safety Report 26032144 (Version 1)
Quarter: 2025Q4

REPORT INFORMATION
  Report Type: Spontaneous
  Country: EU (occurrence: EU)
  Receive Date: 20251112
  Receipt Date: 20251112
  Transmission Date: 20260118
  Serious: Yes (Hospitalization, Other)
  Sender: PHARMOBEDIENT CONSULTING, LLC
  Company Number: EU-Pharmobedient-000459

PATIENT
  Age: 73 Year
  Sex: Male
  Weight: 0 kg

DRUGS (1)
  1. FLUCONAZOLE [Suspect]
     Active Substance: FLUCONAZOLE
     Indication: Antifungal prophylaxis

REACTIONS (3)
  - Drug resistance [Unknown]
  - Aspergillus infection [Unknown]
  - Drug ineffective [Unknown]
